FAERS Safety Report 5777326-2 (Version None)
Quarter: 2008Q2

REPORT INFORMATION
  Report Type: 
  Country: None (occurrence: None)
  Receive Date: 20080618
  Receipt Date: 20080610
  Transmission Date: 20081010
  Serious: Yes (Other)
  Sender: FDA-Public Use
  Company Number: PHHY2008GB10702

PATIENT
  Sex: Female

DRUGS (1)
  1. GLIVEC [Suspect]
     Indication: CHRONIC MYELOID LEUKAEMIA
     Dosage: UNK
     Dates: start: 20080323

REACTIONS (6)
  - DRY MOUTH [None]
  - MUSCLE SPASMS [None]
  - PAIN IN EXTREMITY [None]
  - PANCYTOPENIA [None]
  - PLATELET COUNT DECREASED [None]
  - RASH [None]
